FAERS Safety Report 16799210 (Version 1)
Quarter: 2019Q3

REPORT INFORMATION
  Report Type: Spontaneous
  Country: US (occurrence: US)
  Receive Date: 20190912
  Receipt Date: 20190912
  Transmission Date: 20191005
  Serious: No
  Sender: FDA-Public Use
  Company Number: US-PFIZER INC-2019393221

PATIENT
  Age: 66 Year

DRUGS (2)
  1. LYRICA [Suspect]
     Active Substance: PREGABALIN
     Dosage: 150 MG, 3X/DAY, [150MG 3 TIMES A DAY]
  2. LYRICA [Suspect]
     Active Substance: PREGABALIN
     Dosage: 600 MG, UNK

REACTIONS (2)
  - Somnolence [Unknown]
  - Intentional product misuse [Unknown]
